FAERS Safety Report 22586939 (Version 5)
Quarter: 2023Q4

REPORT INFORMATION
  Report Type: Report from Study
  Country: ZA (occurrence: ZA)
  Receive Date: 20230612
  Receipt Date: 20231019
  Transmission Date: 20240110
  Serious: Yes (Hospitalization, Other)
  Sender: FDA-Public Use
  Company Number: ZA-CELLTRION INC.-2022ZA003256

PATIENT

DRUGS (3)
  1. INFLIXIMAB [Suspect]
     Active Substance: INFLIXIMAB
     Indication: Crohn^s disease
     Dosage: 0 WEEKS = 500 MG
     Route: 042
     Dates: start: 20220314
  2. INFLIXIMAB [Suspect]
     Active Substance: INFLIXIMAB
     Dosage: UNK
     Dates: start: 20230601
  3. INFLIXIMAB [Suspect]
     Active Substance: INFLIXIMAB
     Dosage: 500 MG, EVERY 8 WEEK INTERVALS
     Route: 042
     Dates: start: 20230922

REACTIONS (7)
  - Rheumatoid arthritis [Unknown]
  - Headache [Recovered/Resolved]
  - Fatigue [Recovered/Resolved]
  - Fatigue [Recovered/Resolved]
  - Fatigue [Recovered/Resolved]
  - Gastroenteritis [Recovered/Resolved]
  - Overdose [Unknown]

NARRATIVE: CASE EVENT DATE: 20220314
